FAERS Safety Report 5022338-X (Version None)
Quarter: 2006Q2

REPORT INFORMATION
  Report Type: 
  Country: None (occurrence: None)
  Receive Date: 20060502
  Receipt Date: 20051110
  Transmission Date: 20061013
  Serious: Yes (Hospitalization)
  Sender: FDA-Public Use
  Company Number: PHEH2005US12401

PATIENT
  Age: 33 Year
  Sex: Male
  Weight: 144.2 kg

DRUGS (3)
  1. LOTREL [Suspect]
     Dosage: 10/20 MG, QD, ORAL
     Route: 048
     Dates: start: 20051028, end: 20051106
  2. POTASSIUM (POTASSIUM) [Concomitant]
  3. MAGNESIUM OXIDE (MAGNESIUM OXIDE) [Concomitant]

REACTIONS (2)
  - ANGIONEUROTIC OEDEMA [None]
  - SWOLLEN TONGUE [None]
